FAERS Safety Report 23725057 (Version 1)
Quarter: 2024Q2

REPORT INFORMATION
  Report Type: Spontaneous
  Country: US (occurrence: US)
  Receive Date: 20240410
  Receipt Date: 20240410
  Transmission Date: 20240716
  Serious: Yes (Life-Threatening, Hospitalization, Other)
  Sender: FDA-Public Use
  Company Number: US-MLMSERVICE-20240328-4920354-1

PATIENT
  Age: 73 Year
  Sex: Male

DRUGS (1)
  1. MINOXIDIL [Suspect]
     Active Substance: MINOXIDIL
     Indication: Product used for unknown indication
     Dosage: UNK (LONG TERM)
     Route: 048

REACTIONS (3)
  - Pulmonary hypertension [Recovering/Resolving]
  - Pleural effusion [Recovered/Resolved]
  - Stress cardiomyopathy [Recovered/Resolved]
